FAERS Safety Report 9825805 (Version 1)
Quarter: 2013Q4

REPORT INFORMATION
  Report Type: Spontaneous
  Country: US (occurrence: None)
  Receive Date: 20131101
  Receipt Date: 20131101
  Transmission Date: 20140711
  Serious: Yes (Hospitalization)
  Sender: FDA-Public Use
  Company Number: ALL1-2013-00096

PATIENT
  Age: 14 Year
  Sex: Female

DRUGS (1)
  1. INTUNIV [Suspect]
     Indication: ATTENTION DEFICIT/HYPERACTIVITY DISORDER
     Dosage: 56 MG (28, 2 MG TABLETS), ONE DOSE, ORAL?2 MG, 1X/DAY; QD; ORAL
     Route: 048
     Dates: start: 201209, end: 201209

REACTIONS (2)
  - Loss of consciousness [None]
  - Intentional overdose [None]
